FAERS Safety Report 7605819-1 (Version None)
Quarter: 2011Q3

REPORT INFORMATION
  Report Type: 
  Country: None (occurrence: None)
  Receive Date: 20110713
  Receipt Date: 20110629
  Transmission Date: 20111222
  Serious: Yes (Hospitalization, Disabling, Other)
  Sender: FDA-Public Use
  Company Number: US-ELI_LILLY_AND_COMPANY-US201007002350

PATIENT
  Sex: Female
  Weight: 49.887 kg

DRUGS (8)
  1. FORTEO [Suspect]
     Dosage: 20 UG, DAILY (1/D)
     Dates: start: 20100530, end: 20101101
  2. VITAMIN D [Concomitant]
  3. ACIDOPHILUS [Concomitant]
  4. FORTEO [Suspect]
     Dosage: 20 UG, DAILY (1/D)
     Dates: start: 20110115, end: 20110629
  5. CALCIUM CARBONATE [Concomitant]
  6. FORTEO [Suspect]
     Indication: OSTEOPOROSIS
     Dosage: 20 UG, DAILY (1/D)
     Dates: start: 20090901, end: 20100524
  7. TYLENOL (CAPLET) [Concomitant]
     Dosage: 500 MG, UNK
  8. FLAXSEED OIL [Concomitant]

REACTIONS (36)
  - BONE FORMATION INCREASED [None]
  - CHEST PAIN [None]
  - HIP ARTHROPLASTY [None]
  - IMMOBILE [None]
  - HYPOTENSION [None]
  - DYSPNOEA [None]
  - EXOSTOSIS [None]
  - SOMNOLENCE [None]
  - FATIGUE [None]
  - ASTHENIA [None]
  - FLATULENCE [None]
  - NAUSEA [None]
  - FEMUR FRACTURE [None]
  - VASCULAR INJURY [None]
  - GINGIVAL RECESSION [None]
  - FEELING JITTERY [None]
  - FEELING ABNORMAL [None]
  - MALAISE [None]
  - JAW OPERATION [None]
  - JAW DISORDER [None]
  - WEIGHT DECREASED [None]
  - SENSITIVITY OF TEETH [None]
  - HAEMOGLOBIN DECREASED [None]
  - MUSCULAR WEAKNESS [None]
  - BURNING SENSATION [None]
  - VENTRICULAR EXTRASYSTOLES [None]
  - GINGIVAL BLISTER [None]
  - INCISION SITE COMPLICATION [None]
  - AGGRESSION [None]
  - HAEMORRHAGE [None]
  - BLOOD PRESSURE INCREASED [None]
  - GINGIVAL INJURY [None]
  - VARICOPHLEBITIS [None]
  - IRRITABLE BOWEL SYNDROME [None]
  - GINGIVAL PAIN [None]
  - VEIN PAIN [None]
